FAERS Safety Report 6983407-8 (Version None)
Quarter: 2010Q3

REPORT INFORMATION
  Report Type: 
  Country: None (occurrence: None)
  Receive Date: 20100914
  Receipt Date: 20100914
  Transmission Date: 20110219
  Serious: Yes (Other)
  Sender: FDA-Public Use
  Company Number: None

PATIENT
  Age: 51 Year
  Sex: Male
  Weight: 127.0072 kg

DRUGS (1)
  1. CELEBREX [Suspect]
     Indication: BURSITIS
     Dosage: 1 CAPSULE 1 DOSAGE PO
     Route: 048
     Dates: start: 20100810, end: 20100811

REACTIONS (1)
  - CONSTIPATION [None]
